FAERS Safety Report 8089336-3 (Version None)
Quarter: 2012Q1

REPORT INFORMATION
  Report Type: 
  Country: None (occurrence: None)
  Receive Date: 20120128
  Receipt Date: 20110630
  Transmission Date: 20120608
  Serious: No
  Sender: FDA-Public Use
  Company Number: US-ABBOTT-11P-163-0835704-00

PATIENT
  Sex: Female

DRUGS (13)
  1. DOXEPIN [Concomitant]
     Indication: PRODUCT USED FOR UNKNOWN INDICATION
  2. FOLIC ACID [Concomitant]
     Indication: VITAMIN SUPPLEMENTATION
  3. FLEXERIL [Concomitant]
     Indication: PSORIATIC ARTHROPATHY
  4. CALCIUM + VITAMIN D [Concomitant]
     Indication: MINERAL SUPPLEMENTATION
  5. VITAMIN [Concomitant]
     Indication: VITAMIN SUPPLEMENTATION
  6. METHOTREXATE [Concomitant]
     Indication: PSORIATIC ARTHROPATHY
  7. PRILOSEC [Concomitant]
     Indication: GASTRIC DISORDER
  8. SURTRELINE [Concomitant]
     Indication: PRODUCT USED FOR UNKNOWN INDICATION
  9. TRAZODONE HCL [Concomitant]
     Indication: SLEEP DISORDER THERAPY
  10. VICODIN [Concomitant]
     Indication: ARTHRITIS
  11. HUMIRA [Suspect]
     Indication: PSORIATIC ARTHROPATHY
     Dates: start: 20110501
  12. METFFORMIN HYDROCHLORIDE [Concomitant]
     Indication: DIABETES MELLITUS
  13. SIMVASTATIN [Concomitant]
     Indication: BLOOD CHOLESTEROL INCREASED

REACTIONS (2)
  - ERYTHEMA [None]
  - FEELING HOT [None]
